FAERS Safety Report 8955022 (Version 1)
Quarter: 2012Q4

REPORT INFORMATION
  Report Type: 
  Country: US (occurrence: US)
  Receive Date: 20121207
  Receipt Date: 20121207
  Transmission Date: 20130627
  Serious: Yes (Other)
  Sender: FDA-Public Use
  Company Number: US-PFIZER INC-2012307395

PATIENT
  Age: 78 Year
  Sex: Male

DRUGS (4)
  1. ADVIL [Suspect]
     Indication: SHOULDER PAIN
     Dosage: UNK
  2. ACETYLSALICYLIC ACID [Suspect]
     Dosage: 81 mg, daily
  3. ACETYLSALICYLIC ACID [Suspect]
     Dosage: 325 mg, weekly
  4. ACETYLSALICYLIC ACID [Suspect]
     Dosage: UNK

REACTIONS (5)
  - Haemorrhage [Unknown]
  - Faeces discoloured [Unknown]
  - Abdominal pain upper [Unknown]
  - Malaise [Unknown]
  - Dizziness [Unknown]
